FAERS Safety Report 4877252-7 (Version None)
Quarter: 2006Q1

REPORT INFORMATION
  Report Type: 
  Country: None (occurrence: None)
  Receive Date: 20060109
  Receipt Date: 20060109
  Transmission Date: 20060701
  Serious: Yes (Other)
  Sender: FDA-Public Use
  Company Number: None

PATIENT
  Age: 56 Year
  Sex: Female
  Weight: 82.1011 kg

DRUGS (7)
  1. ZOCOR [Suspect]
     Indication: HYPERLIPIDAEMIA
     Dosage: 80 MG DAILY
     Route: 048
     Dates: start: 20050627, end: 20050826
  2. TRAZODONE [Concomitant]
  3. VISTARIL [Concomitant]
  4. GLUCOVANCE [Concomitant]
  5. FELDENE [Concomitant]
  6. ASPIRIN [Concomitant]
  7. AVISTA [Concomitant]

REACTIONS (1)
  - GASTROINTESTINAL DISORDER [None]
